FAERS Safety Report 23996818 (Version 2)
Quarter: 2024Q3

REPORT INFORMATION
  Report Type: Report from Study
  Country: FR (occurrence: FR)
  Receive Date: 20240620
  Receipt Date: 20240701
  Transmission Date: 20241017
  Serious: Yes (Hospitalization)
  Sender: BIOGEN
  Company Number: FR-BIOGEN-2024BI01269850

PATIENT
  Age: 64 Year
  Sex: Female
  Weight: 82 kg

DRUGS (5)
  1. TOFERSEN [Suspect]
     Active Substance: TOFERSEN
     Indication: Amyotrophic lateral sclerosis
     Route: 050
     Dates: start: 20240606, end: 20240610
  2. RILUZOLE [Concomitant]
     Active Substance: RILUZOLE
     Indication: Amyotrophic lateral sclerosis
     Route: 050
     Dates: start: 20231129
  3. .ALPHA.-TOCOPHEROL ACETATE, D- [Concomitant]
     Active Substance: .ALPHA.-TOCOPHEROL ACETATE, D-
     Indication: Amyotrophic lateral sclerosis
     Route: 050
     Dates: start: 202401
  4. PAROXETINE [Concomitant]
     Active Substance: PAROXETINE
     Indication: Amyotrophic lateral sclerosis
     Route: 050
  5. ATARAX [Concomitant]
     Active Substance: HYDROXYZINE HYDROCHLORIDE
     Indication: Amyotrophic lateral sclerosis
     Route: 050

REACTIONS (5)
  - Pulmonary embolism [Not Recovered/Not Resolved]
  - Hypoxia [Unknown]
  - Right atrial dilatation [Unknown]
  - Right ventricular dilatation [Unknown]
  - Radiation injury [Unknown]

NARRATIVE: CASE EVENT DATE: 20240609
